FAERS Safety Report 11785171 (Version 1)
Quarter: 2015Q4

REPORT INFORMATION
  Report Type: Spontaneous
  Country: US (occurrence: US)
  Receive Date: 20151130
  Receipt Date: 20151130
  Transmission Date: 20160305
  Serious: No
  Sender: FDA-Public Use
  Company Number: US-PFIZER INC-2015345248

PATIENT
  Sex: Female

DRUGS (2)
  1. DISOPYRAMIDE PHOSPHATE. [Suspect]
     Active Substance: DISOPYRAMIDE PHOSPHATE
     Indication: CARDIAC DISORDER
     Dosage: 150 MG, UNK (2 CAPSULES)
  2. NORPACE [Concomitant]
     Active Substance: DISOPYRAMIDE PHOSPHATE
     Dosage: 600 MG, DAILY (2 CAPSULES AM, 2 CAPSULES PM)

REACTIONS (2)
  - Drug dispensing error [Unknown]
  - Chest pain [Recovered/Resolved]
